FAERS Safety Report 25305438 (Version 4)
Quarter: 2025Q2

REPORT INFORMATION
  Report Type: Spontaneous
  Country: JP (occurrence: JP)
  Receive Date: 20250513
  Receipt Date: 20250630
  Transmission Date: 20250716
  Serious: Yes (Life-Threatening, Hospitalization, Other)
  Sender: PFIZER
  Company Number: JP-PFIZER INC-PV202500056753

PATIENT
  Age: 64 Year
  Sex: Female
  Weight: 68.9 kg

DRUGS (16)
  1. VYNDAQEL [Suspect]
     Active Substance: TAFAMIDIS MEGLUMINE
     Indication: Cardiac amyloidosis
     Dosage: 80 MG (4 CAPSULES), 1X/DAY (AFTER BREAKFAST)
     Route: 048
     Dates: start: 20241210
  2. DAPAGLIFLOZIN [Concomitant]
     Active Substance: DAPAGLIFLOZIN
     Dosage: 10 MG, 1X/DAY (AFTER BREAKFAST)
  3. AZOSEMIDE [Concomitant]
     Active Substance: AZOSEMIDE
     Dosage: 30 MG, 1X/DAY (AFTER BREAKFAST)
  4. AZOSEMIDE [Concomitant]
     Active Substance: AZOSEMIDE
  5. BISOPROLOL FUMARATE [Concomitant]
     Active Substance: BISOPROLOL FUMARATE
     Dosage: 2.5 MG, 1X/DAY (AFTER BREAKFAST)
  6. ROSUVASTATIN [Concomitant]
     Active Substance: ROSUVASTATIN
     Dosage: 5 MG, 1X/DAY (AFTER BREAKFAST)
  7. FEBUXOSTAT [Concomitant]
     Active Substance: FEBUXOSTAT
     Dosage: 10 MG, 1X/DAY (AFTER BREAKFAST)
  8. ENTRESTO [Concomitant]
     Active Substance: SACUBITRIL\VALSARTAN
     Dosage: 50 MG, 2X/DAY (AFTER BREAKFAST AND DINNER)
  9. FLECAINIDE ACETATE [Concomitant]
     Active Substance: FLECAINIDE ACETATE
     Dosage: 50 MG, 2X/DAY (AFTER BREAKFAST AND DINNER)
  10. NICORANDIL [Concomitant]
     Active Substance: NICORANDIL
     Dosage: 5 MG, 3X/DAY (AFTER BREAKFAST, LUNCH AND DINNER)
  11. BUDESONIDE\FORMOTEROL [Concomitant]
     Active Substance: BUDESONIDE\FORMOTEROL
     Dosage: UNK, 2X/DAY
  12. TRAMADOL HYDROCHLORIDE AND ACETAMINOPHEN [Concomitant]
     Active Substance: ACETAMINOPHEN\TRAMADOL HYDROCHLORIDE
     Dosage: UNK, 3X/DAY (AFTER BREAKFAST, LUNCH AND DINNER)
  13. MAGNESIUM OXIDE [Concomitant]
     Active Substance: MAGNESIUM OXIDE
     Dosage: UNK, 3X/DAY (AFTER BREAKFAST, LUNCH AND DINNER)
  14. BEPOTASTINE BESYLATE [Concomitant]
     Active Substance: BEPOTASTINE BESYLATE
     Dosage: 10 MG, 2X/DAY (AFTER BREAKFAST AND DINNER)
  15. EDOXABAN TOSYLATE [Concomitant]
     Active Substance: EDOXABAN TOSYLATE
     Dosage: 30 MG, 1X/DAY (AFTER BREAKFAST)
  16. LANSOPRAZOLE [Concomitant]
     Active Substance: LANSOPRAZOLE
     Dosage: 15 MG, 1X/DAY (AFTER BREAKFAST)

REACTIONS (2)
  - Ventricular tachycardia [Recovering/Resolving]
  - Cardiac failure [Recovering/Resolving]

NARRATIVE: CASE EVENT DATE: 20250508
